FAERS Safety Report 18566791 (Version 1)
Quarter: 2020Q4

REPORT INFORMATION
  Report Type: Report from Study
  Country: US (occurrence: US)
  Receive Date: 20201201
  Receipt Date: 20201201
  Transmission Date: 20210114
  Serious: No
  Sender: FDA-Public Use
  Company Number: US-DOVA PHARMACEUTICALS INC.-DOV-000597

PATIENT
  Age: 55 Year
  Sex: Female

DRUGS (7)
  1. DOPTELET [Suspect]
     Active Substance: AVATROMBOPAG MALEATE
     Dosage: 20 MG, QD
     Route: 048
  2. AMOXICILLIN. [Concomitant]
     Active Substance: AMOXICILLIN
     Indication: PRODUCT USED FOR UNKNOWN INDICATION
     Dosage: UNK
  3. CITALOPRAM [Concomitant]
     Active Substance: CITALOPRAM HYDROBROMIDE
     Indication: PRODUCT USED FOR UNKNOWN INDICATION
     Dosage: UNK
  4. BISOPROLOL /HCTZ [Concomitant]
     Active Substance: BISOPROLOL FUMARATE\HYDROCHLOROTHIAZIDE
     Indication: PRODUCT USED FOR UNKNOWN INDICATION
     Dosage: UNK
  5. PREDNISONE. [Concomitant]
     Active Substance: PREDNISONE
     Indication: PRODUCT USED FOR UNKNOWN INDICATION
     Dosage: UNK
  6. DOPTELET [Suspect]
     Active Substance: AVATROMBOPAG MALEATE
     Indication: ANAEMIA
     Dosage: 20 MG, QD
     Route: 048
  7. DEXAMETHASONE. [Concomitant]
     Active Substance: DEXAMETHASONE
     Indication: PRODUCT USED FOR UNKNOWN INDICATION
     Dosage: UNK

REACTIONS (4)
  - Fatigue [Unknown]
  - Somnolence [Unknown]
  - Burning sensation [Recovered/Resolved]
  - Product use in unapproved indication [Unknown]

NARRATIVE: CASE EVENT DATE: 20200722
